FAERS Safety Report 9029430 (Version 1)
Quarter: 2013Q1

REPORT INFORMATION
  Report Type: Spontaneous
  Country: SE (occurrence: SE)
  Receive Date: 20130125
  Receipt Date: 20130125
  Transmission Date: 20140127
  Serious: Yes (Other)
  Sender: FDA-Public Use
  Company Number: SE-JNJFOC-20130109387

PATIENT
  Age: 58 Year
  Sex: 0

DRUGS (3)
  1. REMICADE [Suspect]
     Indication: ANKYLOSING SPONDYLITIS
     Route: 042
     Dates: start: 20100415, end: 20100623
  2. SALAZOPYRIN [Concomitant]
     Route: 065
  3. PREDNISOLON [Concomitant]
     Route: 065

REACTIONS (2)
  - Respiratory disorder [Recovered/Resolved]
  - Urinary tract infection [Recovered/Resolved]
